FAERS Safety Report 6933453-5 (Version None)
Quarter: 2010Q3

REPORT INFORMATION
  Report Type: 
  Country: None (occurrence: None)
  Receive Date: 20100820
  Receipt Date: 20100812
  Transmission Date: 20110219
  Serious: Yes (Other)
  Sender: FDA-Public Use
  Company Number: BE-PFIZER INC-2010101295

PATIENT
  Age: 85 Year
  Sex: Male

DRUGS (1)
  1. AMLODIPINE [Suspect]
     Dosage: UNK
     Route: 048
     Dates: start: 20060101

REACTIONS (1)
  - PARKINSON'S DISEASE [None]
